FAERS Safety Report 7252338-0 (Version None)
Quarter: 2011Q1

REPORT INFORMATION
  Report Type: 
  Country: None (occurrence: None)
  Receive Date: 20110129
  Receipt Date: 20100125
  Transmission Date: 20110831
  Serious: No
  Sender: FDA-Public Use
  Company Number: PR-ABBOTT-09P-131-0616870-00

PATIENT
  Sex: Female

DRUGS (6)
  1. HUMIRA [Suspect]
     Indication: RHEUMATOID ARTHRITIS
     Route: 058
     Dates: start: 20050101
  2. CRESTOR [Concomitant]
     Indication: BLOOD CHOLESTEROL INCREASED
     Dosage: 20 MG, 1 TABLET, DAILY
     Route: 048
  3. MOBID [Concomitant]
     Indication: ARTHRALGIA
     Dosage: 2.5 MG, 1 TABLET, DAILY
     Route: 048
  4. ADVAIR [Concomitant]
     Indication: ASTHMA
     Route: 055
  5. SINGULAIR [Concomitant]
     Indication: ASTHMA
     Dosage: 20 MG, 1 TABLET, DAILY
     Route: 048
  6. WOMEN VITAMINS [Concomitant]
     Indication: MEDICAL DIET
     Route: 048

REACTIONS (2)
  - INJECTION SITE PRURITUS [None]
  - INJECTION SITE REACTION [None]
